FAERS Safety Report 8504960-9 (Version None)
Quarter: 2012Q3

REPORT INFORMATION
  Report Type: 
  Country: None (occurrence: None)
  Receive Date: 20120712
  Receipt Date: 20120709
  Transmission Date: 20120928
  Serious: Yes (Other)
  Sender: FDA-Public Use
  Company Number: PHHY2012JP055781

PATIENT
  Age: 48 Year
  Sex: Female

DRUGS (2)
  1. ANTIINFECTIVES [Concomitant]
  2. ZOLEDRONIC ACID [Suspect]
     Indication: METASTASES TO BONE
     Dosage: UNK UKN, UNK
     Route: 041
     Dates: start: 20080401

REACTIONS (4)
  - OSTEONECROSIS OF JAW [None]
  - EXPOSED BONE IN JAW [None]
  - PAIN IN JAW [None]
  - BACTERIAL INFECTION [None]
